FAERS Safety Report 7396834-4 (Version None)
Quarter: 2011Q1

REPORT INFORMATION
  Report Type: 
  Country: None (occurrence: None)
  Receive Date: 20110325
  Receipt Date: 20110314
  Transmission Date: 20110831
  Serious: Yes (Other)
  Sender: FDA-Public Use
  Company Number: DSJ-2011-05254

PATIENT
  Age: 72 Year
  Sex: Male
  Weight: 73 kg

DRUGS (3)
  1. OLMESARTAN MEDOXOMIL [Suspect]
     Indication: ESSENTIAL HYPERTENSION
     Dosage: 20 MG, PER ORAL
     Route: 048
  2. AZELNIDIPINE (AZELNIDIPINE) (TABLET) [Suspect]
     Indication: ESSENTIAL HYPERTENSION
     Dosage: 16 MG, PER ORAL
     Route: 048
  3. SEVOFLURANE [Suspect]
     Indication: ANAESTHESIA PROCEDURE

REACTIONS (5)
  - BLOOD PRESSURE SYSTOLIC INCREASED [None]
  - BLOOD PRESSURE DECREASED [None]
  - ELECTROCARDIOGRAM QT PROLONGED [None]
  - TORSADE DE POINTES [None]
  - HEART RATE DECREASED [None]
